FAERS Safety Report 20370290 (Version 1)
Quarter: 2022Q1

REPORT INFORMATION
  Report Type: Spontaneous
  Country: US (occurrence: US)
  Receive Date: 20220124
  Receipt Date: 20220124
  Transmission Date: 20220423
  Serious: Yes (Other)
  Sender: FDA-Public Use
  Company Number: US-RECORDATI RARE DISEASE INC.-2022000061

PATIENT
  Age: 4 Year
  Sex: Female
  Weight: 19.9 kg

DRUGS (5)
  1. DACTINOMYCIN [Suspect]
     Active Substance: DACTINOMYCIN
     Indication: Embryonal rhabdomyosarcoma
     Dosage: 0.05 MILLIGRAM/KILOGRAM, CYCLICAL, ON DAY 1 OF CYCLES 1 AND 3
     Route: 042
     Dates: start: 20200422, end: 20200602
  2. CYCLOPHOSPHAMIDE [Suspect]
     Active Substance: CYCLOPHOSPHAMIDE
     Indication: Embryonal rhabdomyosarcoma
     Dosage: 1200 MILLIGRAM/SQ. METER, CYCLIC, ON DAY 1 OF CYCLES 1 AND 3
     Route: 042
     Dates: start: 20200422, end: 20200602
  3. IRINOTECAN [Suspect]
     Active Substance: IRINOTECAN
     Indication: Embryonal rhabdomyosarcoma
     Dosage: 50 MILLIGRAM/SQ. METER, CYCLICAL, ON DAYS 1-5 OF CYCLES 2 AND 4
     Route: 042
     Dates: start: 20200512, end: 20200516
  4. VINCRISTINE [Suspect]
     Active Substance: VINCRISTINE
     Indication: Embryonal rhabdomyosarcoma
     Dosage: 1.5 MILLIGRAM/SQ. METER, CYCLICAL, ON DAYS 1, 8 AND 15
     Route: 042
     Dates: start: 20200422, end: 20200602
  5. TEMSIROLIMUS [Suspect]
     Active Substance: TEMSIROLIMUS
     Indication: Embryonal rhabdomyosarcoma
     Dosage: 92.1 MILLIGRAM/SQ. METER, CYCLICAL, ON DAYS 1, 8 AND 15
     Route: 042
     Dates: start: 20200422, end: 20200609

REACTIONS (1)
  - Proteinuria [Not Recovered/Not Resolved]

NARRATIVE: CASE EVENT DATE: 20200616
